FAERS Safety Report 7707018-1 (Version None)
Quarter: 2011Q3

REPORT INFORMATION
  Report Type: 
  Country: None (occurrence: None)
  Receive Date: 20110818
  Receipt Date: 20110803
  Transmission Date: 20111222
  Serious: Yes (Hospitalization)
  Sender: FDA-Public Use
  Company Number: 2011168061

PATIENT
  Age: 61 Year
  Sex: Male

DRUGS (7)
  1. IBUPROFEN [Concomitant]
  2. ACETAMINOPHEN [Concomitant]
  3. ERLOTINIB HYDROCHLORIDE [Concomitant]
  4. FUROSEMIDE [Concomitant]
  5. DALTEPARIN SODIUM [Suspect]
     Indication: LUNG NEOPLASM MALIGNANT
     Dates: start: 20110803
  6. DALTEPARIN SODIUM [Suspect]
     Indication: LUNG NEOPLASM MALIGNANT
     Dates: start: 20110418, end: 20110723
  7. FOLIC ACID [Concomitant]

REACTIONS (4)
  - CONFUSIONAL STATE [None]
  - PLEURAL EFFUSION [None]
  - TACHYCARDIA [None]
  - PNEUMOTHORAX [None]
